FAERS Safety Report 6105215-2 (Version None)
Quarter: 2009Q1

REPORT INFORMATION
  Report Type: 
  Country: None (occurrence: None)
  Receive Date: 20090304
  Receipt Date: 20090304
  Transmission Date: 20090719
  Serious: Yes (Life-Threatening, Hospitalization)
  Sender: FDA-Public Use
  Company Number: None

PATIENT
  Age: 53 Year
  Sex: Male
  Weight: 114 kg

DRUGS (3)
  1. VARENICLINE [Suspect]
     Indication: SMOKING CESSATION THERAPY
     Dosage: 1 MG BID PO
     Route: 048
     Dates: start: 20090130, end: 20090222
  2. TRAZODONE HCL [Suspect]
     Indication: DEPRESSION
     Dosage: 100 MG HS PO
     Route: 048
  3. TRAZODONE HCL [Suspect]
     Indication: SLEEP DISORDER
     Dosage: 100 MG HS PO
     Route: 048

REACTIONS (3)
  - INTENTIONAL OVERDOSE [None]
  - POISONING [None]
  - TREATMENT FAILURE [None]
